FAERS Safety Report 7267676-5 (Version None)
Quarter: 2011Q1

REPORT INFORMATION
  Report Type: 
  Country: None (occurrence: None)
  Receive Date: 20110201
  Receipt Date: 20110125
  Transmission Date: 20110831
  Serious: Yes (Hospitalization)
  Sender: FDA-Public Use
  Company Number: B0695899A

PATIENT
  Sex: Female

DRUGS (1)
  1. NIQUITIN CQ CLEAR 21MG [Suspect]
     Dosage: 21MG UNKNOWN
     Route: 062

REACTIONS (8)
  - LOSS OF CONSCIOUSNESS [None]
  - PULSE PRESSURE DECREASED [None]
  - MALAISE [None]
  - BLOOD POTASSIUM INCREASED [None]
  - BLOOD PHOSPHORUS INCREASED [None]
  - ATRIAL FIBRILLATION [None]
  - HYPERHIDROSIS [None]
  - BLOOD GLUCOSE INCREASED [None]
